FAERS Safety Report 5263594-2 (Version None)
Quarter: 2007Q1

REPORT INFORMATION
  Report Type: 
  Country: None (occurrence: None)
  Receive Date: 20070313
  Receipt Date: 20070306
  Transmission Date: 20070707
  Serious: Yes (Hospitalization)
  Sender: FDA-Public Use
  Company Number: JP-ROCHE-472096

PATIENT
  Age: 55 Year
  Sex: Male

DRUGS (3)
  1. TICLOPIDINE HCL [Suspect]
     Indication: ANGINA PECTORIS
     Route: 048
     Dates: start: 20061102, end: 20061105
  2. NICORANDIL [Suspect]
     Indication: ANGINA PECTORIS
     Route: 048
     Dates: start: 20061102, end: 20061105
  3. ASPIRIN [Concomitant]
     Indication: ANGINA PECTORIS
     Route: 048
     Dates: start: 20061102

REACTIONS (1)
  - ECZEMA [None]
